FAERS Safety Report 6332405-6 (Version None)
Quarter: 2009Q3

REPORT INFORMATION
  Report Type: 
  Country: None (occurrence: None)
  Receive Date: 20090828
  Receipt Date: 20090818
  Transmission Date: 20100115
  Serious: Yes (Hospitalization)
  Sender: FDA-Public Use
  Company Number: JP-JNJFOC-20090806834

PATIENT
  Age: 40 Year
  Sex: Male

DRUGS (3)
  1. INFLIXIMAB [Suspect]
     Indication: HAEMATOCHEZIA
     Dosage: ONE DOSE ADMINISTERED
     Route: 042
  2. PREDNISOLONE [Suspect]
     Indication: CROHN'S DISEASE
  3. MESALAZINE [Suspect]
     Indication: CROHN'S DISEASE

REACTIONS (3)
  - HAEMATOCHEZIA [None]
  - HYPOVOLAEMIC SHOCK [None]
  - MENINGITIS BACTERIAL [None]
